FAERS Safety Report 7513638-X (Version None)
Quarter: 2011Q2

REPORT INFORMATION
  Report Type: 
  Country: None (occurrence: None)
  Receive Date: 20110520
  Receipt Date: 20110510
  Transmission Date: 20111010
  Serious: Yes (Disabling, Other)
  Sender: FDA-Public Use
  Company Number: 2011BN000039

PATIENT
  Age: 34 Month

DRUGS (6)
  1. CYCLOSPORINE [Concomitant]
  2. MELPHALAN HYDROCHLORIDE [Suspect]
     Indication: RETINOBLASTOMA UNILATERAL
     Dosage: 3 MG; IART; 6 MG; ; IART
  3. HEPARIN [Concomitant]
  4. VINCRISTINE [Concomitant]
  5. ETOPOSIDE [Concomitant]
  6. CARBOPLATIN [Concomitant]

REACTIONS (2)
  - VITREOUS HAEMORRHAGE [None]
  - NEOPLASM PROGRESSION [None]
